FAERS Safety Report 5507167-2 (Version None)
Quarter: 2007Q4

REPORT INFORMATION
  Report Type: 
  Country: None (occurrence: None)
  Receive Date: 20071102
  Receipt Date: 20071022
  Transmission Date: 20080405
  Serious: Yes (Hospitalization)
  Sender: FDA-Public Use
  Company Number: DSU-2007-00766

PATIENT
  Age: 65 Year
  Sex: Male
  Weight: 78.9259 kg

DRUGS (3)
  1. BENICAR [Suspect]
     Indication: HYPERTENSION
     Dosage: 20 MG (20 MG, QD), PER ORAL
     Route: 048
     Dates: start: 20051001, end: 20070301
  2. LIPITOR [Concomitant]
  3. ACIPHEX (RABEPRAZOLE SODIUM) (RABEPRAZOLE SODIUM) [Concomitant]

REACTIONS (9)
  - BLOOD POTASSIUM DECREASED [None]
  - CANDIDIASIS [None]
  - CENTRAL LINE INFECTION [None]
  - CYSTITIS ESCHERICHIA [None]
  - DEHYDRATION [None]
  - DIARRHOEA [None]
  - ORAL HERPES [None]
  - PARALYSIS [None]
  - WEIGHT DECREASED [None]
